FAERS Safety Report 17118909 (Version 1)
Quarter: 2019Q4

REPORT INFORMATION
  Report Type: Spontaneous
  Country: US (occurrence: US)
  Receive Date: 20191206
  Receipt Date: 20191206
  Transmission Date: 20200122
  Serious: No
  Sender: FDA-Public Use
  Company Number: US-UCBSA-2017031889

PATIENT
  Age: 39 Year
  Sex: Female

DRUGS (5)
  1. CARBAMAZEPINE. [Concomitant]
     Active Substance: CARBAMAZEPINE
     Indication: TEMPORAL LOBE EPILEPSY
     Dosage: UNKNOWN DOSE
  2. LEVETIRACETAM. [Suspect]
     Active Substance: LEVETIRACETAM
     Indication: TEMPORAL LOBE EPILEPSY
     Dosage: UNKNOWN DOSE
  3. GABAPENTIN. [Concomitant]
     Active Substance: GABAPENTIN
     Indication: TEMPORAL LOBE EPILEPSY
     Dosage: UNKNOWN DOSE
  4. VALPROIC ACID. [Concomitant]
     Active Substance: VALPROIC ACID
     Indication: TEMPORAL LOBE EPILEPSY
     Dosage: UNKNOWN DOSE
  5. PHENYTOIN. [Concomitant]
     Active Substance: PHENYTOIN
     Indication: TEMPORAL LOBE EPILEPSY
     Dosage: UNKNOWN DOSE

REACTIONS (1)
  - Nervous system disorder [Recovering/Resolving]
